FAERS Safety Report 20968315 (Version 3)
Quarter: 2023Q1

REPORT INFORMATION
  Report Type: Spontaneous
  Country: US (occurrence: US)
  Receive Date: 20220616
  Receipt Date: 20230321
  Transmission Date: 20230417
  Serious: No
  Sender: FDA-Public Use
  Company Number: US-PFIZER INC-PV202200003289

PATIENT
  Age: 66 Year
  Sex: Female

DRUGS (1)
  1. INLYTA [Suspect]
     Active Substance: AXITINIB
     Dosage: UNK
     Dates: start: 20220311

REACTIONS (6)
  - Oral discomfort [Unknown]
  - Myalgia [Unknown]
  - Fatigue [Unknown]
  - Dysphonia [Unknown]
  - Thyroid function test abnormal [Unknown]
  - Diarrhoea [Unknown]

NARRATIVE: CASE EVENT DATE: 20220101
